FAERS Safety Report 19844583 (Version 1)
Quarter: 2021Q3

REPORT INFORMATION
  Report Type: Spontaneous
  Country: US (occurrence: US)
  Receive Date: 20210916
  Receipt Date: 20210916
  Transmission Date: 20211014
  Serious: No
  Sender: FDA-Public Use
  Company Number: US-TEVA-2021-US-1950260

PATIENT
  Sex: Female

DRUGS (1)
  1. ESTRADIOL. [Suspect]
     Active Substance: ESTRADIOL
     Dosage: TABLETS ? VAGINAL
     Route: 065

REACTIONS (3)
  - Device delivery system issue [Unknown]
  - Vulvovaginal burning sensation [Unknown]
  - Device issue [Unknown]
